FAERS Safety Report 16133043 (Version 1)
Quarter: 2019Q2

REPORT INFORMATION
  Report Type: Spontaneous
  Country: US (occurrence: US)
  Receive Date: 20190328
  Receipt Date: 20190328
  Transmission Date: 20190711
  Serious: Yes (Disabling)
  Sender: FDA-Public Use
  Company Number: None

PATIENT
  Age: 26 Year
  Sex: Female
  Weight: 63 kg

DRUGS (1)
  1. LEVOFLOXACIN GENERIC FOR LEVAQUIN [Suspect]
     Active Substance: LEVOFLOXACIN
     Indication: URINARY TRACT INFECTION
     Dosage: ?          QUANTITY:5 TABLET(S);?
     Route: 048
     Dates: start: 20190320, end: 20190321

REACTIONS (13)
  - Somnolence [None]
  - Insomnia [None]
  - Anxiety [None]
  - Sleep disorder [None]
  - Dyspnoea [None]
  - Dizziness [None]
  - Discomfort [None]
  - Neck pain [None]
  - Paraesthesia [None]
  - Arthralgia [None]
  - Muscular weakness [None]
  - Product prescribing issue [None]
  - Pain in extremity [None]

NARRATIVE: CASE EVENT DATE: 20190321
